FAERS Safety Report 24151909 (Version 1)
Quarter: 2024Q3

REPORT INFORMATION
  Report Type: Spontaneous
  Country: SI (occurrence: SI)
  Receive Date: 20240730
  Receipt Date: 20240730
  Transmission Date: 20241017
  Serious: Yes (Life-Threatening, Hospitalization, Other)
  Sender: BRISTOL MYERS SQUIBB
  Company Number: SI-BRISTOL-MYERS SQUIBB COMPANY-2024-116423

PATIENT
  Age: 62 Year
  Sex: Female

DRUGS (9)
  1. NIVOLUMAB [Suspect]
     Active Substance: NIVOLUMAB
     Indication: Lung adenocarcinoma
     Dosage: 22 AUGUST 2023, SHE WAS STARTED ON CHEMO/IMMUNOTHERAPY WITH NIVOLUMAB, IPILIMUMAB, PEMETREXED AND CA
     Dates: start: 20230822
  2. NIVOLUMAB [Suspect]
     Active Substance: NIVOLUMAB
     Dosage: 12 SEPTEMBER 2023, THE SECOND CYCLE WITH CARBOPLATIN, PEMETREXED AND NIVOLUMAB WAS ADMINISTERED
     Dates: start: 20230912
  3. NIVOLUMAB [Suspect]
     Active Substance: NIVOLUMAB
     Dates: start: 20231005
  4. IPILIMUMAB [Suspect]
     Active Substance: IPILIMUMAB
     Indication: Lung adenocarcinoma
     Dates: start: 20230822
  5. IPILIMUMAB [Suspect]
     Active Substance: IPILIMUMAB
     Dates: start: 20231005
  6. PEMETREXED [Concomitant]
     Active Substance: PEMETREXED
     Indication: Lung adenocarcinoma
     Dosage: 22 AUGUST 2023, SHE WAS STARTED ON CHEMO/IMMUNOTHERAPY WITH NIVOLUMAB, IPILIMUMAB, PEMETREXED AND CA
     Dates: start: 20230822
  7. PEMETREXED [Concomitant]
     Active Substance: PEMETREXED
     Dosage: 12 SEPTEMBER 2023, THE SECOND CYCLE WITH CARBOPLATIN, PEMETREXED AND NIVOLUMAB WAS ADMINISTERED
     Dates: start: 20230912
  8. CARBOPLATIN [Concomitant]
     Active Substance: CARBOPLATIN
     Indication: Lung adenocarcinoma
     Dosage: 22 AUGUST 2023, SHE WAS STARTED ON CHEMO/IMMUNOTHERAPY WITH NIVOLUMAB, IPILIMUMAB, PEMETREXED AND CA
     Dates: start: 20230822
  9. CARBOPLATIN [Concomitant]
     Active Substance: CARBOPLATIN
     Dosage: 12 SEPTEMBER 2023, THE SECOND CYCLE WITH CARBOPLATIN, PEMETREXED AND NIVOLUMAB WAS ADMINISTERED
     Dates: start: 20230912

REACTIONS (1)
  - Cytokine release syndrome [Recovering/Resolving]
